FAERS Safety Report 8443031-7 (Version None)
Quarter: 2012Q2

REPORT INFORMATION
  Report Type: 
  Country: None (occurrence: None)
  Receive Date: 20120615
  Receipt Date: 20120608
  Transmission Date: 20120825
  Serious: Yes (Hospitalization)
  Sender: FDA-Public Use
  Company Number: PHHO2012TH001948

PATIENT
  Sex: Male
  Weight: 52.8 kg

DRUGS (10)
  1. TKI258 [Suspect]
     Dosage: 500 MG, UNK
     Route: 048
     Dates: start: 20120128
  2. ALDACTONE [Concomitant]
     Indication: PROPHYLAXIS
     Dosage: 100 MG, QD
     Route: 048
     Dates: start: 20111213
  3. CLINDAMYCIN [Suspect]
     Dosage: (300) 2 X 3 EDC
  4. INDOMETHACIN [Concomitant]
     Indication: PAIN
     Dosage: 1 DF, BID
     Route: 048
     Dates: start: 20120107
  5. VITAMIN B1 TAB [Concomitant]
     Indication: VITAMIN SUPPLEMENTATION
     Dosage: 1 DF, BID
     Route: 048
     Dates: start: 20111213
  6. LEUCOVORIN CALCIUM [Concomitant]
     Indication: VITAMIN SUPPLEMENTATION
     Dosage: 5 MG, QD
     Route: 048
     Dates: start: 20111213
  7. VITAMIN B-12 [Concomitant]
     Indication: VITAMIN SUPPLEMENTATION
     Dosage: 1 DF, QD
     Route: 048
     Dates: start: 20111213
  8. TKI258 [Suspect]
     Indication: HEPATIC NEOPLASM MALIGNANT
     Dosage: 500 MG, UNK
     Route: 048
     Dates: start: 20111227, end: 20120125
  9. VITAMIN B6 [Concomitant]
     Indication: VITAMIN SUPPLEMENTATION
     Dosage: 1 DF, BID
     Route: 048
     Dates: start: 20111213
  10. TRAMADOL HYDROCHLORIDE [Concomitant]
     Indication: PAIN
     Dosage: 1 DF, BID
     Route: 048
     Dates: start: 20120107

REACTIONS (2)
  - PLEURAL EFFUSION [None]
  - DISEASE PROGRESSION [None]
